FAERS Safety Report 4748556-3 (Version None)
Quarter: 2005Q3

REPORT INFORMATION
  Report Type: 
  Country: None (occurrence: None)
  Receive Date: 20050818
  Receipt Date: 20050818
  Transmission Date: 20060218
  Serious: Yes (Hospitalization, Disabling, Other)
  Sender: FDA-Public Use
  Company Number: None

PATIENT
  Age: 40 Year
  Sex: Female
  Weight: 81.6475 kg

DRUGS (2)
  1. DEPO-MEDROL [Suspect]
     Indication: BACK INJURY
     Dosage: 40 MG   4 X'S OVER 2 MONTH   INTRADISCA
     Route: 024
     Dates: start: 20050107, end: 20050325
  2. DEPO-MEDROL [Suspect]
     Indication: NECK INJURY
     Dosage: 40 MG   4 X'S OVER 2 MONTH   INTRADISCA
     Route: 024
     Dates: start: 20050107, end: 20050325

REACTIONS (5)
  - ACTIVITIES OF DAILY LIVING IMPAIRED [None]
  - ARTHROPATHY [None]
  - CONDITION AGGRAVATED [None]
  - IMPAIRED WORK ABILITY [None]
  - PAIN [None]
